FAERS Safety Report 16938920 (Version 1)
Quarter: 2019Q4

REPORT INFORMATION
  Report Type: Spontaneous
  Country: US (occurrence: US)
  Receive Date: 20190828
  Receipt Date: 20190828
  Transmission Date: 20200122
  Serious: Yes (Life-Threatening, Disabling)
  Sender: FDA-Public Use
  Company Number: None

PATIENT
  Age: 74 Year
  Sex: Female
  Weight: 61.23 kg

DRUGS (1)
  1. TIZANIDINE 4MG [Suspect]
     Active Substance: TIZANIDINE
     Indication: MUSCLE TIGHTNESS

REACTIONS (3)
  - Head injury [None]
  - Limb injury [None]
  - Fall [None]

NARRATIVE: CASE EVENT DATE: 201907
